FAERS Safety Report 24001610 (Version 2)
Quarter: 2024Q4

REPORT INFORMATION
  Report Type: Spontaneous
  Country: US (occurrence: US)
  Receive Date: 20240621
  Receipt Date: 20241005
  Transmission Date: 20250114
  Serious: No
  Sender: SANDOZ
  Company Number: US-SANDOZ-SDZ2024US059173

PATIENT
  Sex: Female

DRUGS (1)
  1. ESTRADIOL [Suspect]
     Active Substance: ESTRADIOL
     Indication: Menopause
     Dosage: 0.05MG/DAY- BIW
     Route: 062

REACTIONS (5)
  - Menopausal symptoms [Unknown]
  - Symptom recurrence [Unknown]
  - Drug ineffective [Unknown]
  - Therapeutic response changed [Unknown]
  - Product substitution issue [Unknown]
